FAERS Safety Report 10165532 (Version 1)
Quarter: 2014Q2

REPORT INFORMATION
  Report Type: Spontaneous
  Country: US (occurrence: US)
  Receive Date: 20140510
  Receipt Date: 20140510
  Transmission Date: 20141212
  Serious: No
  Sender: FDA-Public Use
  Company Number: US-BRISTOL-MYERS SQUIBB COMPANY-19851419

PATIENT
  Age: 45 Year
  Sex: Male

DRUGS (2)
  1. BYDUREON  2MG SUSPENSION [Suspect]
     Route: 058
     Dates: start: 20131006, end: 20131120
  2. SYMLIN [Concomitant]

REACTIONS (1)
  - Injection site swelling [Not Recovered/Not Resolved]
